FAERS Safety Report 6867009-X (Version None)
Quarter: 2010Q3

REPORT INFORMATION
  Report Type: 
  Country: None (occurrence: None)
  Receive Date: 20100722
  Receipt Date: 20100715
  Transmission Date: 20110219
  Serious: Yes (Hospitalization)
  Sender: FDA-Public Use
  Company Number: CN-ROCHE-715551

PATIENT
  Age: 40 Year
  Sex: Female

DRUGS (1)
  1. PEGINTERFERON ALFA-2A [Suspect]
     Indication: HEPATITIS B
     Route: 058
     Dates: start: 20091022, end: 20100501

REACTIONS (2)
  - MUSCLE SPASMS [None]
  - PYREXIA [None]
